FAERS Safety Report 4459138-5 (Version None)
Quarter: 2004Q3

REPORT INFORMATION
  Report Type: 
  Country: None (occurrence: None)
  Receive Date: 20040920
  Receipt Date: 20040920
  Transmission Date: 20050211
  Serious: Yes (Hospitalization)
  Sender: FDA-Public Use
  Company Number: None

PATIENT
  Age: 67 Year
  Sex: Female
  Weight: 65 kg

DRUGS (17)
  1. LINEZOLID [Suspect]
     Dosage: 600 MG IV Q 12
     Route: 042
  2. FLUOXETINE [Suspect]
     Indication: DEPRESSION
     Dosage: 20 MG PO BID
     Route: 048
  3. IMIPRAM TAB [Suspect]
     Indication: DEPRESSION
     Dosage: 50 MG PO QD
     Route: 048
  4. THIOIDAZINE [Suspect]
     Indication: DEPRESSION
     Dosage: 25 MG PO Q 6
     Route: 048
  5. HEPARIN [Concomitant]
  6. CYCLOBENZAPRINE HCL [Concomitant]
  7. TIMOLOL MALEATE [Concomitant]
  8. VANCOMYCIN [Concomitant]
  9. LANSOPRAZOLE [Concomitant]
  10. LEVOTHYROXINE SODIUM [Concomitant]
  11. CEFTRIAXONE SODIUM [Concomitant]
  12. DOCUSATE [Concomitant]
  13. FENTANYL [Concomitant]
  14. APAP TAB [Concomitant]
  15. LACTULOSE [Concomitant]
  16. GABAPENTIN [Concomitant]
  17. CLONIDINE HCL [Concomitant]

REACTIONS (7)
  - AGITATION [None]
  - CONFUSIONAL STATE [None]
  - DYSKINESIA [None]
  - HYPERTENSION [None]
  - POSTURE ABNORMAL [None]
  - TACHYCARDIA [None]
  - TREATMENT NONCOMPLIANCE [None]
